FAERS Safety Report 24437014 (Version 1)
Quarter: 2024Q4

REPORT INFORMATION
  Report Type: Report from Study
  Country: US (occurrence: US)
  Receive Date: 20241015
  Receipt Date: 20241015
  Transmission Date: 20250114
  Serious: Yes (Other)
  Sender: ABBVIE
  Company Number: US-ABBVIE-5961143

PATIENT
  Sex: Female

DRUGS (1)
  1. SKYRIZI [Suspect]
     Active Substance: RISANKIZUMAB-RZAA
     Indication: Prostatic specific antigen
     Route: 058

REACTIONS (7)
  - Haemolytic uraemic syndrome [Recovering/Resolving]
  - Sepsis [Unknown]
  - Dehydration [Unknown]
  - Electrolyte imbalance [Unknown]
  - Cardiac failure [Unknown]
  - Renal failure [Unknown]
  - Gastroenteritis Escherichia coli [Unknown]
